FAERS Safety Report 20997768 (Version 1)
Quarter: 2022Q2

REPORT INFORMATION
  Report Type: Spontaneous
  Country: US (occurrence: None)
  Receive Date: 20220622
  Receipt Date: 20220622
  Transmission Date: 20220721
  Serious: No
  Sender: FDA-Public Use
  Company Number: None

PATIENT
  Age: 36 Year
  Sex: Female
  Weight: 58.5 kg

DRUGS (4)
  1. PAXLOVID [Suspect]
     Active Substance: NIRMATRELVIR\RITONAVIR
     Indication: COVID-19
     Dosage: OTHER QUANTITY : 3 CAPSULE(S);?FREQUENCY : TWICE A DAY;?
     Route: 048
     Dates: start: 20220618, end: 20220622
  2. CYMBALTA [Concomitant]
     Active Substance: DULOXETINE HYDROCHLORIDE
  3. Omeprezole 40mg (not used at the same time) [Concomitant]
  4. BETAMETHASONE [Concomitant]
     Active Substance: BETAMETHASONE

REACTIONS (2)
  - Abdominal pain upper [None]
  - Dysgeusia [None]

NARRATIVE: CASE EVENT DATE: 20220621
